FAERS Safety Report 20539401 (Version 2)
Quarter: 2022Q1

REPORT INFORMATION
  Report Type: Report from Study
  Country: AT (occurrence: AT)
  Receive Date: 20220302
  Receipt Date: 20220325
  Transmission Date: 20220423
  Serious: Yes (Hospitalization, Other)
  Sender: FDA-Public Use
  Company Number: AT-CELLTRION INC.-2022AT002144

PATIENT

DRUGS (14)
  1. TRASTUZUMAB [Suspect]
     Active Substance: TRASTUZUMAB
     Indication: HER2 positive breast cancer
     Dosage: MOST RECENT DOSE PRIOR TO THE EVENT: 12/MAY/2021
     Route: 041
     Dates: start: 20180924
  2. DENOSUMAB [Suspect]
     Active Substance: DENOSUMAB
     Indication: HER2 positive breast cancer
     Dosage: MOST RECENT DOSE PRIOR TO THE EVENT: 18/SEP/2018
     Route: 058
     Dates: start: 20180918
  3. ADO-TRASTUZUMAB EMTANSINE [Suspect]
     Active Substance: ADO-TRASTUZUMAB EMTANSINE
     Indication: HER2 positive breast cancer
     Dosage: LAST DRUG ADMINISTRATION PRIOR TO AE- 21/APR/2021
     Route: 042
     Dates: start: 20201001
  4. DOCETAXEL [Suspect]
     Active Substance: DOCETAXEL
     Indication: HER2 positive breast cancer
     Dosage: MOST RECENT DOSE ON 23/JAN/2019
     Route: 042
     Dates: start: 20180924
  5. CAPECITABINE [Suspect]
     Active Substance: CAPECITABINE
     Indication: HER2 positive breast cancer
     Dosage: MOST RECENT DOSE PRIOR TO THE EVENT: 15/MAY/2021
     Route: 048
     Dates: start: 20210512
  6. PERTUZUMAB [Suspect]
     Active Substance: PERTUZUMAB
     Indication: HER2 positive breast cancer
     Dosage: MOST RECENT DOSE PRIOR TO THE EVENT: 15/OCT/2018
     Route: 042
     Dates: start: 20180924
  7. DEXAMETHASONE [Concomitant]
     Active Substance: DEXAMETHASONE
     Dosage: UNK
     Dates: start: 20211213
  8. PRAM [CITALOPRAM HYDROBROMIDE] [Concomitant]
     Dosage: ONGOING = CHECKED
  9. CALCIDURAN [ASCORBIC ACID;CALCIUM PHOSPHATE;CITRIC ACID;COLECALCIFEROL [Concomitant]
     Dosage: ONGOING = CHECKED
     Dates: start: 20190827
  10. KEPPRA [Concomitant]
     Active Substance: LEVETIRACETAM
     Indication: Epilepsy
     Dosage: ONGOING = CHECKED
     Dates: start: 20210513
  11. ZOFRAN [Concomitant]
     Active Substance: ONDANSETRON HYDROCHLORIDE
     Dosage: ONGOING = CHECKED
     Dates: start: 20211213
  12. LOVENOX [Concomitant]
     Active Substance: ENOXAPARIN SODIUM
     Dosage: UNK
     Dates: start: 20211124, end: 20211124
  13. DRONABINOL [Concomitant]
     Active Substance: DRONABINOL
     Dosage: ONGOING = CHECKED
     Dates: start: 20210304
  14. ALPRAZOLAM [Concomitant]
     Active Substance: ALPRAZOLAM
     Dosage: ONGOING = CHECKED
     Dates: start: 20181114

REACTIONS (4)
  - Syncope [Recovered/Resolved]
  - Hypokalaemia [Recovered/Resolved]
  - Soft tissue infection [Recovered/Resolved]
  - Diarrhoea [Recovered/Resolved]

NARRATIVE: CASE EVENT DATE: 20211123
